FAERS Safety Report 11791691 (Version 2)
Quarter: 2015Q4

REPORT INFORMATION
  Report Type: Report from Study
  Country: CO (occurrence: CO)
  Receive Date: 20151201
  Receipt Date: 20151222
  Transmission Date: 20160305
  Serious: Yes (Death)
  Sender: FDA-Public Use
  Company Number: CO-ABBVIE-15P-036-1510895-00

PATIENT
  Age: 48 Year
  Sex: Male

DRUGS (1)
  1. ZEMPLAR [Suspect]
     Active Substance: PARICALCITOL
     Indication: HYPERPARATHYROIDISM SECONDARY
     Route: 042
     Dates: start: 20150928, end: 20151125

REACTIONS (6)
  - Hypertensive heart disease [Fatal]
  - Device related infection [Fatal]
  - Endocarditis [Fatal]
  - Cerebral artery embolism [Fatal]
  - Septic embolus [Fatal]
  - Cerebrovascular accident [Fatal]

NARRATIVE: CASE EVENT DATE: 20151125
